FAERS Safety Report 8509986-7 (Version None)
Quarter: 2012Q3

REPORT INFORMATION
  Report Type: 
  Country: None (occurrence: None)
  Receive Date: 20120713
  Receipt Date: 20120703
  Transmission Date: 20120928
  Serious: No
  Sender: FDA-Public Use
  Company Number: US-ASTRAZENECA-2012SE45158

PATIENT
  Sex: Female
  Weight: 88.5 kg

DRUGS (6)
  1. EYE DROPS [Concomitant]
     Indication: DRY EYE
  2. METFORMIN HYDROCHLORIDE [Concomitant]
     Indication: DIABETES MELLITUS
  3. JANUVIA [Concomitant]
     Indication: DIABETES MELLITUS
  4. DIOVAN [Concomitant]
     Indication: HYPERTENSION
  5. LIPITOR [Concomitant]
     Indication: HYPERTENSION
  6. NEXIUM [Suspect]
     Indication: GASTROOESOPHAGEAL REFLUX DISEASE
     Route: 048

REACTIONS (3)
  - DRUG DOSE OMISSION [None]
  - MIGRAINE [None]
  - VISION BLURRED [None]
